FAERS Safety Report 9117109 (Version 2)
Quarter: 2013Q1

REPORT INFORMATION
  Report Type: Spontaneous
  Country: IT (occurrence: IT)
  Receive Date: 20130208
  Receipt Date: 20130319
  Transmission Date: 20140127
  Serious: Yes (Hospitalization)
  Sender: FDA-Public Use
  Company Number: IT-PFIZER INC-2013043962

PATIENT
  Age: 73 Year
  Sex: Male

DRUGS (4)
  1. TRIATEC [Suspect]
     Indication: HYPERTENSION
     Dosage: 20 MG, DAILY
     Route: 048
     Dates: start: 20120101, end: 20121010
  2. AMLODIPINE BESILATE [Suspect]
     Indication: HYPERTENSION
     Dosage: 10 MG, DAILY
     Route: 048
     Dates: start: 20120101, end: 20121010
  3. OLMESARTAN MEDOXOMIL [Suspect]
     Indication: HYPERTENSION
     Dosage: 40 MG, DAILY
     Route: 048
     Dates: start: 20120101, end: 20121010
  4. IVABRADINE [Concomitant]
     Dosage: UNK

REACTIONS (2)
  - Hypotension [Recovering/Resolving]
  - Diverticulitis [Recovering/Resolving]
